FAERS Safety Report 24137398 (Version 1)
Quarter: 2024Q3

REPORT INFORMATION
  Report Type: Spontaneous
  Country: JP (occurrence: JP)
  Receive Date: 20240725
  Receipt Date: 20240725
  Transmission Date: 20241017
  Serious: Yes (Death, Hospitalization)
  Sender: PFIZER
  Company Number: JP-PFIZER INC-202400223277

PATIENT

DRUGS (1)
  1. TAFAMIDIS MEGLUMINE [Suspect]
     Active Substance: TAFAMIDIS MEGLUMINE
     Indication: Cardiac amyloidosis
     Dosage: 80 MG
     Route: 048

REACTIONS (2)
  - Death [Fatal]
  - Cardiac failure [Unknown]
